FAERS Safety Report 21843671 (Version 1)
Quarter: 2023Q1

REPORT INFORMATION
  Report Type: Spontaneous
  Country: CN (occurrence: CN)
  Receive Date: 20230110
  Receipt Date: 20230110
  Transmission Date: 20230418
  Serious: Yes (Hospitalization, Disabling, Other)
  Sender: FDA-Public Use
  Company Number: CN-PFIZER INC-PV202300003616

PATIENT
  Age: 91 Year
  Sex: Male

DRUGS (3)
  1. NIRMATRELVIR\RITONAVIR [Suspect]
     Active Substance: NIRMATRELVIR\RITONAVIR
     Indication: Pulmonary sarcoidosis
     Dosage: 1 DF, 1X/DAY
     Route: 048
     Dates: start: 20221223, end: 20221228
  2. NIRMATRELVIR\RITONAVIR [Suspect]
     Active Substance: NIRMATRELVIR\RITONAVIR
     Indication: COVID-19 treatment
  3. NIRMATRELVIR\RITONAVIR [Suspect]
     Active Substance: NIRMATRELVIR\RITONAVIR
     Indication: Coronavirus pneumonia

REACTIONS (9)
  - Acute kidney injury [Unknown]
  - Respiratory rate increased [Unknown]
  - Depressed mood [Unknown]
  - Hypophagia [Unknown]
  - Dysphoria [Unknown]
  - Blood creatinine increased [Unknown]
  - Heart rate increased [Unknown]
  - Body temperature increased [Unknown]
  - Off label use [Unknown]

NARRATIVE: CASE EVENT DATE: 20221223
